FAERS Safety Report 19912873 (Version 1)
Quarter: 2021Q4

REPORT INFORMATION
  Report Type: Spontaneous
  Country: US (occurrence: US)
  Receive Date: 20211004
  Receipt Date: 20211004
  Transmission Date: 20220304
  Serious: No
  Sender: FDA-Public Use
  Company Number: None

PATIENT
  Sex: Female
  Weight: 93.6 kg

DRUGS (5)
  1. CAPECITABINE [Suspect]
     Active Substance: CAPECITABINE
     Indication: Breast cancer
     Dosage: ?          OTHER FREQUENCY:BID 14/21 DAYS;
     Route: 048
     Dates: start: 20210308
  2. GLIPIZIDE [Concomitant]
     Active Substance: GLIPIZIDE
  3. METOPROLOL [Concomitant]
     Active Substance: METOPROLOL
  4. OXYBUTYNIN. [Concomitant]
     Active Substance: OXYBUTYNIN CHLORIDE
  5. ROSUVASTATIN [Concomitant]
     Active Substance: ROSUVASTATIN

REACTIONS (1)
  - Chest pain [None]
